FAERS Safety Report 17218240 (Version 1)
Quarter: 2019Q4

REPORT INFORMATION
  Report Type: Spontaneous
  Country: JP (occurrence: JP)
  Receive Date: 20191231
  Receipt Date: 20191231
  Transmission Date: 20200122
  Serious: Yes (Other)
  Sender: FDA-Public Use
  Company Number: JP-SUN PHARMACEUTICAL INDUSTRIES LTD-2019RR-232150

PATIENT
  Age: 33 Year
  Sex: Female

DRUGS (3)
  1. BISOPROLOL [Suspect]
     Active Substance: BISOPROLOL
     Indication: SINUS TACHYCARDIA
     Dosage: 2.5 MILLIGRAM, DAILY
     Route: 065
  2. VERAPAMIL [Suspect]
     Active Substance: VERAPAMIL HYDROCHLORIDE
     Indication: SINUS TACHYCARDIA
     Dosage: 240 MILLIGRAM, DAILY
     Route: 065
  3. CARVEDILOL. [Suspect]
     Active Substance: CARVEDILOL
     Indication: SINUS TACHYCARDIA
     Dosage: 5 MILLIGRAM, DAILY
     Route: 065

REACTIONS (4)
  - Fatigue [Unknown]
  - Drug resistance [Unknown]
  - Headache [Unknown]
  - Dizziness [Unknown]
